FAERS Safety Report 19328759 (Version 1)
Quarter: 2021Q2

REPORT INFORMATION
  Report Type: Spontaneous
  Country: CA (occurrence: CA)
  Receive Date: 20210528
  Receipt Date: 20210528
  Transmission Date: 20210717
  Serious: Yes (Other)
  Sender: FDA-Public Use
  Company Number: NVSC2021CA118379

PATIENT
  Sex: Male

DRUGS (2)
  1. PREDNISONE. [Concomitant]
     Active Substance: PREDNISONE
     Indication: PRODUCT USED FOR UNKNOWN INDICATION
     Dosage: UNK (60 MG/M2)
     Route: 065
  2. TACROLIMUS. [Suspect]
     Active Substance: TACROLIMUS
     Indication: NEPHROTIC SYNDROME
     Dosage: UNK
     Route: 065
     Dates: start: 201911, end: 20210517

REACTIONS (4)
  - Product use in unapproved indication [Unknown]
  - Glomerulonephritis minimal lesion [Unknown]
  - Prescription drug used without a prescription [Unknown]
  - Nephrotic syndrome [Unknown]
